FAERS Safety Report 8390591-0 (Version None)
Quarter: 2012Q2

REPORT INFORMATION
  Report Type: 
  Country: None (occurrence: None)
  Receive Date: 20120529
  Receipt Date: 20120516
  Transmission Date: 20120825
  Serious: Yes (Hospitalization)
  Sender: FDA-Public Use
  Company Number: AU-ELI_LILLY_AND_COMPANY-AU201205005846

PATIENT
  Sex: Female

DRUGS (2)
  1. FORTEO [Suspect]
     Indication: OSTEOPOROSIS
     Dosage: UNK, QD
     Dates: start: 20110630
  2. INSULIN [Concomitant]

REACTIONS (4)
  - HYPOGLYCAEMIA [None]
  - TYPE 2 DIABETES MELLITUS [None]
  - INFECTION [None]
  - SURGERY [None]
